FAERS Safety Report 7700902-4 (Version None)
Quarter: 2011Q3

REPORT INFORMATION
  Report Type: 
  Country: None (occurrence: None)
  Receive Date: 20110822
  Receipt Date: 20110810
  Transmission Date: 20111222
  Serious: Yes (Other)
  Sender: FDA-Public Use
  Company Number: PHHY2011FR56125

PATIENT
  Sex: Female
  Weight: 43 kg

DRUGS (5)
  1. EXELON [Suspect]
     Dosage: 4.5 MG, BID
     Dates: start: 20110621, end: 20110621
  2. INDAPAMIDE [Concomitant]
  3. ESCITALOPRAM [Concomitant]
     Dosage: 10 MG, QD
     Dates: start: 20110419
  4. EXELON [Suspect]
     Dosage: 2 DF, 4.6MG/24H
     Route: 062
     Dates: start: 20110619, end: 20110621
  5. EXELON [Suspect]
     Indication: DEMENTIA ALZHEIMER'S TYPE
     Dosage: 1 DF, (4.6 MG/24 H)
     Route: 062
     Dates: start: 20110309, end: 20110618

REACTIONS (7)
  - HYPERTENSION [None]
  - VOMITING [None]
  - NAUSEA [None]
  - PAIN [None]
  - OVERDOSE [None]
  - GASTROINTESTINAL HAEMORRHAGE [None]
  - DIARRHOEA [None]
